FAERS Safety Report 10494428 (Version 1)
Quarter: 2014Q3

REPORT INFORMATION
  Report Type: Spontaneous
  Country: US (occurrence: None)
  Receive Date: 20140815
  Receipt Date: 20140815
  Transmission Date: 20150326
  Serious: Yes (Other)
  Sender: FDA-Public Use
  Company Number: ADR-2014-00041

PATIENT
  Sex: Male

DRUGS (4)
  1. SALINE [Suspect]
     Active Substance: SODIUM CHLORIDE
  2. BACLOFEN INTRATHECAL [Suspect]
     Active Substance: BACLOFEN
     Indication: PAIN
  3. MORPHINE [Suspect]
     Active Substance: MORPHINE
  4. CLONIDINE. [Suspect]
     Active Substance: CLONIDINE

REACTIONS (6)
  - Underdose [None]
  - Unevaluable event [None]
  - No therapeutic response [None]
  - Restless legs syndrome [None]
  - Back pain [None]
  - Drug withdrawal syndrome [None]
